FAERS Safety Report 21305319 (Version 3)
Quarter: 2023Q2

REPORT INFORMATION
  Report Type: Spontaneous
  Country: JP (occurrence: JP)
  Receive Date: 20220907
  Receipt Date: 20230627
  Transmission Date: 20230722
  Serious: Yes (Other)
  Sender: FDA-Public Use
  Company Number: JP-ASTELLAS-2022JP013367

PATIENT
  Age: 44 Year
  Sex: Female

DRUGS (2)
  1. XOSPATA [Suspect]
     Active Substance: GILTERITINIB
     Indication: Acute myeloid leukaemia recurrent
     Dosage: UNK UNK, UNKNOWN FREQ.
     Route: 048
     Dates: start: 20220121
  2. XOSPATA [Suspect]
     Active Substance: GILTERITINIB
     Route: 048

REACTIONS (1)
  - Capillary leak syndrome [Recovered/Resolved]

NARRATIVE: CASE EVENT DATE: 20220904
